FAERS Safety Report 7552025-5 (Version None)
Quarter: 2011Q2

REPORT INFORMATION
  Report Type: 
  Country: None (occurrence: None)
  Receive Date: 20110609
  Receipt Date: 20110524
  Transmission Date: 20111010
  Serious: Yes (Other)
  Sender: FDA-Public Use
  Company Number: 2011MA006446

PATIENT
  Age: 13 Year
  Sex: Male
  Weight: 61 kg

DRUGS (4)
  1. OMEPRAZOLE [Concomitant]
  2. THIOGUANINE [Concomitant]
  3. ONDANSETRON [Concomitant]
  4. SULFATRIM [Suspect]
     Dosage: 800 MG; OD;

REACTIONS (7)
  - VIITH NERVE PARALYSIS [None]
  - SWELLING FACE [None]
  - HEMIPARESIS [None]
  - PLATELET COUNT DECREASED [None]
  - DYSARTHRIA [None]
  - HAEMOGLOBIN DECREASED [None]
  - MONOPARESIS [None]
